FAERS Safety Report 9045465 (Version 1)
Quarter: 2013Q1

REPORT INFORMATION
  Report Type: Report from Study
  Country: US (occurrence: US)
  Receive Date: 20130131
  Receipt Date: 20130131
  Transmission Date: 20140127
  Serious: No
  Sender: FDA-Public Use
  Company Number: US-ABBOTT-12P-163-1001527-00

PATIENT
  Age: 59 Year
  Sex: Female

DRUGS (31)
  1. HUMIRA [Suspect]
     Indication: PSORIASIS
     Dosage: LAODING DOSE
     Route: 058
     Dates: start: 20121025, end: 20121025
  2. HUMIRA [Suspect]
     Dosage: LAODING DOSE
     Route: 058
     Dates: start: 201210
  3. VIIBYRD [Concomitant]
     Indication: DEPRESSION
  4. GLUCOPHAGE [Concomitant]
     Indication: DIABETES MELLITUS
  5. CLARITIN [Concomitant]
     Indication: HYPERSENSITIVITY
  6. LASIX [Concomitant]
     Indication: FLUID RETENTION
  7. INSULIN LEVEMIR [Concomitant]
     Indication: DIABETES MELLITUS
  8. INSULIN HUMALOG [Concomitant]
     Indication: DIABETES MELLITUS
     Dosage: SLIDING SCALE
  9. DILAUDID [Concomitant]
     Indication: DIABETIC NEUROPATHY
  10. NORCO [Concomitant]
     Indication: DIABETIC NEUROPATHY
     Dosage: 7.5/325 MG
  11. CALCIPOTRIENE [Concomitant]
     Indication: PSORIASIS
  12. PRESERVISION VITAMIN [Concomitant]
     Indication: EYE DISORDER
  13. KETOCONAZOLE 2% CREAM [Concomitant]
     Indication: PSORIASIS
  14. CLOBETASOL CREAM [Concomitant]
     Indication: PRODUCT USED FOR UNKNOWN INDICATION
  15. DEXAMETHASONE CREAM [Concomitant]
     Indication: PSORIASIS
  16. MUPIROCIN 2% CREAM [Concomitant]
     Indication: PSORIASIS
  17. VALIUM [Concomitant]
     Indication: DEPRESSION
  18. DICLOFENAC [Concomitant]
     Indication: ANTIINFLAMMATORY THERAPY
  19. NYSTATIN POWDER [Concomitant]
     Indication: PSORIASIS
  20. MYLANTA DOUBLE STRENGTH [Concomitant]
     Indication: PRODUCT USED FOR UNKNOWN INDICATION
  21. MILK OF MAGNESIA [Concomitant]
     Indication: PRODUCT USED FOR UNKNOWN INDICATION
  22. VITAMIN B12 [Concomitant]
     Indication: PRODUCT USED FOR UNKNOWN INDICATION
     Dosage: MONTHLY
  23. ICY HOT [Concomitant]
     Indication: ARTHROPATHY
  24. PREPERATION H [Concomitant]
     Indication: HAEMORRHOIDS
  25. MAGNESIUM [Concomitant]
     Indication: VITAMIN SUPPLEMENTATION
  26. VIT D [Concomitant]
     Indication: PRODUCT USED FOR UNKNOWN INDICATION
  27. GABAPENTIN [Concomitant]
     Indication: DIABETIC NEUROPATHY
     Dosage: 2 TABLETS
  28. BENADRYL [Concomitant]
     Indication: RELAXATION THERAPY
     Dosage: AS REQUIRED
  29. DIOVAN HCT [Concomitant]
     Indication: HYPERTENSION
     Dosage: 320-12.5 MG DAILY
  30. FLONASE [Concomitant]
     Indication: HYPERSENSITIVITY
     Dosage: TO EACH NOSTRIL
  31. COLACE [Concomitant]
     Indication: CONSTIPATION PROPHYLAXIS

REACTIONS (3)
  - Injection site pain [Recovering/Resolving]
  - Diarrhoea [Recovering/Resolving]
  - Abdominal pain [Recovering/Resolving]
